FAERS Safety Report 18841655 (Version 3)
Quarter: 2021Q3

REPORT INFORMATION
  Report Type: Spontaneous
  Country: US (occurrence: US)
  Receive Date: 20210203
  Receipt Date: 20210909
  Transmission Date: 20211014
  Serious: Yes (Other)
  Sender: FDA-Public Use
  Company Number: US-PFIZER INC-2021064379

PATIENT
  Age: 50 Year
  Sex: Female
  Weight: 90.72 kg

DRUGS (5)
  1. IBRANCE [Suspect]
     Active Substance: PALBOCICLIB
     Dosage: 100 MG, CYCLIC (ONCE DAILY FOR 21 DAYS THEN 7 DAYS OFF)
     Dates: start: 2021
  2. IBRANCE [Suspect]
     Active Substance: PALBOCICLIB
     Indication: BREAST CANCER METASTATIC
     Dosage: 150 MG, CYCLIC (ONCE A DAY FOR 21 DAYS AND ONE WEEK OFF)
     Route: 048
     Dates: start: 2020
  3. AROMASIN [Concomitant]
     Active Substance: EXEMESTANE
     Indication: HORMONE THERAPY
     Dosage: 25 MG, DAILY
     Route: 048
     Dates: start: 202002
  4. IBRANCE [Suspect]
     Active Substance: PALBOCICLIB
     Dosage: 125 MG, CYCLIC (ONCE A DAY FOR 21 DAYS AND ONE WEEK OFF)
     Route: 048
     Dates: start: 20200811, end: 20210106
  5. ZOMETA [Concomitant]
     Active Substance: ZOLEDRONIC ACID
     Indication: BONE CANCER METASTATIC
     Dosage: UNK, MONTHLY
     Route: 042

REACTIONS (12)
  - Spinal fracture [Unknown]
  - Psychomotor hyperactivity [Unknown]
  - Irritability [Unknown]
  - Mental disorder [Unknown]
  - Anxiety [Unknown]
  - Illness [Unknown]
  - Feeling abnormal [Unknown]
  - White blood cell count decreased [Unknown]
  - Hormone level abnormal [Unknown]
  - Muscle atrophy [Unknown]
  - Crying [Unknown]
  - Musculoskeletal stiffness [Unknown]
